FAERS Safety Report 10513406 (Version 4)
Quarter: 2014Q4

REPORT INFORMATION
  Report Type: Spontaneous
  Country: JP (occurrence: JP)
  Receive Date: 20141013
  Receipt Date: 20141114
  Transmission Date: 20150528
  Serious: Yes (Death, Other)
  Sender: FDA-Public Use
  Company Number: JP-ASTELLAS-2014JP016703AA

PATIENT
  Age: 63 Year
  Sex: Male
  Weight: 63 kg

DRUGS (8)
  1. DEPAS [Concomitant]
     Active Substance: ETIZOLAM
     Indication: NEUROSIS
     Dosage: 0.5 MG, THRICE DAILY
     Route: 048
     Dates: end: 20140719
  2. ONEALFA [Concomitant]
     Active Substance: ALFACALCIDOL
     Indication: HYPOCALCAEMIA
     Dosage: 0.5 MCG, ONCE DAILY
     Route: 048
     Dates: end: 20140719
  3. LIMAPROST ALFADEX [Concomitant]
     Active Substance: LIMAPROST
     Indication: LUMBAR SPINAL STENOSIS
     Dosage: 5 MCG, THRICE DAILY
     Route: 048
     Dates: end: 20140719
  4. FENTOS [Concomitant]
     Active Substance: FENTANYL
     Indication: CANCER PAIN
     Route: 062
     Dates: start: 20140624, end: 20140724
  5. XTANDI [Suspect]
     Active Substance: ENZALUTAMIDE
     Indication: PROSTATE CANCER
     Route: 048
     Dates: start: 20140610, end: 20140719
  6. TAKEPRON [Concomitant]
     Active Substance: LANSOPRAZOLE
     Indication: GASTRIC ULCER
     Route: 048
     Dates: end: 20140719
  7. FERROUS SULFATE [Concomitant]
     Active Substance: FERROUS SULFATE\FERROUS SULFATE, DRIED
     Indication: ANAEMIA
     Route: 048
     Dates: end: 20140719
  8. FORSENID                           /00571901/ [Concomitant]
     Indication: CONSTIPATION
     Route: 048
     Dates: end: 20140719

REACTIONS (2)
  - Prostate cancer [Fatal]
  - Pleural effusion [Unknown]

NARRATIVE: CASE EVENT DATE: 20140712
